FAERS Safety Report 6565442-7 (Version None)
Quarter: 2010Q1

REPORT INFORMATION
  Report Type: 
  Country: None (occurrence: None)
  Receive Date: 20100201
  Receipt Date: 20100118
  Transmission Date: 20100710
  Serious: Yes (Death)
  Sender: FDA-Public Use
  Company Number: GB-MYLANLABS-2009S1006149

PATIENT
  Age: 41 Year
  Sex: Female
  Weight: 72 kg

DRUGS (2)
  1. CITALOPRAM [Suspect]
     Indication: DEPRESSION
     Route: 048
     Dates: start: 20081101, end: 20081201
  2. CONTRACEPTIVE [Concomitant]
     Indication: CONTRACEPTION

REACTIONS (3)
  - MALAISE [None]
  - RASH [None]
  - SUDDEN CARDIAC DEATH [None]
